FAERS Safety Report 8031759-2 (Version None)
Quarter: 2012Q1

REPORT INFORMATION
  Report Type: 
  Country: None (occurrence: None)
  Receive Date: 20120109
  Receipt Date: 20120104
  Transmission Date: 20120608
  Serious: Yes (Other)
  Sender: FDA-Public Use
  Company Number: AU-SANOFI-AVENTIS-2012SA000616

PATIENT
  Age: 72 Year
  Sex: Male

DRUGS (6)
  1. LANTUS [Suspect]
     Dosage: FREQUENCY:AT NIGHT
     Route: 065
  2. ALL OTHER THERAPEUTIC PRODUCTS [Concomitant]
     Route: 048
     Dates: end: 20090902
  3. ALL OTHER THERAPEUTIC PRODUCTS [Concomitant]
     Route: 048
  4. SOLOSTAR [Suspect]
     Indication: DEVICE THERAPY
     Dates: start: 20090902
  5. SOLOSTAR [Suspect]
  6. LANTUS [Suspect]
     Indication: TYPE 2 DIABETES MELLITUS
     Dosage: DOSAGE REPORTED AS 45-50 IU DAILY
     Route: 065
     Dates: start: 20090902

REACTIONS (1)
  - CORONARY ARTERY BYPASS [None]
